FAERS Safety Report 12632877 (Version 1)
Quarter: 2016Q3

REPORT INFORMATION
  Report Type: Spontaneous
  Country: None (occurrence: None)
  Receive Date: 20160808
  Receipt Date: 20160808
  Transmission Date: 20161109
  Serious: Yes (Death)
  Sender: FDA-Public Use
  Company Number: None

PATIENT
  Age: 75 Year
  Sex: Male
  Weight: 63.5 kg

DRUGS (1)
  1. METHOTREXATE PIZER [Suspect]
     Active Substance: METHOTREXATE
     Indication: ARTHRITIS

REACTIONS (1)
  - Death [None]
